FAERS Safety Report 20827630 (Version 1)
Quarter: 2022Q2

REPORT INFORMATION
  Report Type: Spontaneous
  Country: EG (occurrence: None)
  Receive Date: 20220513
  Receipt Date: 20220513
  Transmission Date: 20220720
  Serious: Yes (Death)
  Sender: FDA-Public Use
  Company Number: 2022A180714

PATIENT
  Sex: Male

DRUGS (3)
  1. CALQUENCE [Suspect]
     Active Substance: ACALABRUTINIB
     Indication: Chronic lymphocytic leukaemia
     Route: 048
  2. FEBUXOSTAT [Concomitant]
     Active Substance: FEBUXOSTAT
     Route: 065
  3. H2 BLOCKER [Concomitant]
     Route: 065

REACTIONS (1)
  - Death [Fatal]
